FAERS Safety Report 9243263 (Version 1)
Quarter: 2013Q2

REPORT INFORMATION
  Report Type: Spontaneous
  Country: US (occurrence: US)
  Receive Date: 20130420
  Receipt Date: 20130420
  Transmission Date: 20140414
  Serious: No
  Sender: FDA-Public Use
  Company Number: US-ASTRAZENECA-2013SE21805

PATIENT
  Age: 67 Year
  Sex: Female

DRUGS (6)
  1. CRESTOR [Suspect]
     Indication: BLOOD CHOLESTEROL ABNORMAL
     Route: 048
     Dates: start: 20130401
  2. METOPROLOL EXTENDED RELEASE [Suspect]
     Indication: HYPERTENSION
     Route: 048
  3. PRAVASTATIN [Suspect]
     Route: 065
  4. LEVTHYROXINE [Concomitant]
     Indication: THYROID DISORDER
     Dosage: UNK
  5. AMITRIPTYLINE [Concomitant]
     Indication: INSOMNIA
  6. LOSARTIN [Concomitant]
     Indication: HYPERTENSION

REACTIONS (6)
  - Diplopia [Not Recovered/Not Resolved]
  - Adverse event [Unknown]
  - Vomiting [Not Recovered/Not Resolved]
  - Dizziness [Not Recovered/Not Resolved]
  - Nausea [Not Recovered/Not Resolved]
  - Urticaria [Not Recovered/Not Resolved]
